FAERS Safety Report 19295150 (Version 3)
Quarter: 2021Q3

REPORT INFORMATION
  Report Type: Spontaneous
  Country: DO (occurrence: DO)
  Receive Date: 20210524
  Receipt Date: 20210826
  Transmission Date: 20211014
  Serious: No
  Sender: FDA-Public Use
  Company Number: DO-PFIZER INC-2021480918

PATIENT
  Age: 12 Year
  Sex: Female

DRUGS (1)
  1. GENOTROPIN [Suspect]
     Active Substance: SOMATROPIN
     Dosage: 1.5 (UNKNOWN UNIT)
     Dates: start: 20210412

REACTIONS (4)
  - Device difficult to use [Unknown]
  - Device leakage [Unknown]
  - Drug dose omission by device [Unknown]
  - Device information output issue [Unknown]
